FAERS Safety Report 8045232-9 (Version None)
Quarter: 2012Q1

REPORT INFORMATION
  Report Type: 
  Country: None (occurrence: None)
  Receive Date: 20120113
  Receipt Date: 20111209
  Transmission Date: 20120608
  Serious: Yes (Hospitalization)
  Sender: FDA-Public Use
  Company Number: FR-JNJFOC-20111011526

PATIENT
  Age: 67 Year
  Sex: Female
  Weight: 107 kg

DRUGS (9)
  1. ACETAMINOPHEN AND CODEINE PHOSPHATE [Concomitant]
  2. DOMPERIDONE [Concomitant]
  3. LASIX [Concomitant]
  4. LEVOTHYROXINE SODIUM [Concomitant]
  5. IMOVANE [Concomitant]
  6. RAMIPRIL [Concomitant]
  7. XARELTO [Suspect]
     Indication: KNEE ARTHROPLASTY
     Route: 048
     Dates: start: 20110929, end: 20111009
  8. RABEPRAZOLE SODIUM [Concomitant]
  9. ALUMINUM HYDROXIDE AND MAGNESIUM TRISILICATE [Concomitant]

REACTIONS (1)
  - DEEP VEIN THROMBOSIS [None]
